FAERS Safety Report 13037191 (Version 1)
Quarter: 2016Q4

REPORT INFORMATION
  Report Type: Report from Study
  Country: US (occurrence: US)
  Receive Date: 20161216
  Receipt Date: 20161216
  Transmission Date: 20170207
  Serious: Yes (Other)
  Sender: FDA-Public Use
  Company Number: US-MALLINCKRODT-T201606340

PATIENT
  Age: 84 Year
  Sex: Female
  Weight: 60 kg

DRUGS (5)
  1. REPOSITORY CORTICOTROPIN INJECTION [Suspect]
     Active Substance: CORTICOTROPIN
     Indication: TEMPORAL ARTERITIS
     Dosage: 80 UNITS / 1 ML, 2 TIMES PER WEEK
     Route: 058
     Dates: start: 20161126
  2. KLONOPIN [Suspect]
     Active Substance: CLONAZEPAM
     Indication: MIGRAINE
  3. KLONOPIN [Suspect]
     Active Substance: CLONAZEPAM
     Indication: TEMPORAL ARTERITIS
     Dosage: ORALLY DISINTEGRATING TABLETS (ODT), 25 MG EVERY 12 HOURS
     Dates: start: 20161202
  4. REPOSITORY CORTICOTROPIN INJECTION [Interacting]
     Active Substance: CORTICOTROPIN
     Indication: RHEUMATOID ARTHRITIS
  5. REPOSITORY CORTICOTROPIN INJECTION [Interacting]
     Active Substance: CORTICOTROPIN
     Indication: TREMOR

REACTIONS (4)
  - Feeling abnormal [Recovered/Resolved]
  - Coordination abnormal [Recovered/Resolved]
  - Headache [Not Recovered/Not Resolved]
  - Mental impairment [Recovered/Resolved]

NARRATIVE: CASE EVENT DATE: 20161203
